FAERS Safety Report 15886296 (Version 1)
Quarter: 2019Q1

REPORT INFORMATION
  Report Type: Spontaneous
  Country: US (occurrence: US)
  Receive Date: 20190129
  Receipt Date: 20190129
  Transmission Date: 20190417
  Serious: No
  Sender: FDA-Public Use
  Company Number: US-US WORLDMEDS, LLC-USW201712-001770

PATIENT
  Age: 64 Year
  Sex: Female
  Weight: 66.22 kg

DRUGS (8)
  1. LINZESS [Concomitant]
     Active Substance: LINACLOTIDE
     Route: 048
  2. PHENTERMINE. [Concomitant]
     Active Substance: PHENTERMINE
     Indication: APPETITE DISORDER
     Route: 048
  3. DEXILANT [Concomitant]
     Active Substance: DEXLANSOPRAZOLE
     Indication: DYSPEPSIA
     Route: 048
  4. PRISTIQ EXTENDED-RELEASE [Suspect]
     Active Substance: DESVENLAFAXINE SUCCINATE
     Indication: DEPRESSION
     Route: 048
  5. LINZESS [Concomitant]
     Active Substance: LINACLOTIDE
     Indication: CONSTIPATION
  6. NADOLOL. [Suspect]
     Active Substance: NADOLOL
     Indication: ARRHYTHMIA
     Route: 048
  7. TOPIRAMATE. [Concomitant]
     Active Substance: TOPIRAMATE
     Indication: MIGRAINE
     Route: 048
  8. LINZESS [Concomitant]
     Active Substance: LINACLOTIDE

REACTIONS (7)
  - Neurotransmitter level altered [Unknown]
  - Product use in unapproved indication [Unknown]
  - Spinal deformity [Unknown]
  - Skin lesion [Unknown]
  - Fatigue [Not Recovered/Not Resolved]
  - Sensory disturbance [Unknown]
  - Depressed mood [Unknown]

NARRATIVE: CASE EVENT DATE: 20171212
